FAERS Safety Report 5558403-8 (Version None)
Quarter: 2007Q4

REPORT INFORMATION
  Report Type: 
  Country: None (occurrence: None)
  Receive Date: 20071214
  Receipt Date: 20071019
  Transmission Date: 20080405
  Serious: No
  Sender: FDA-Public Use
  Company Number: US-ABBOTT-07P-163-0365873-00

PATIENT
  Sex: Female
  Weight: 58.112 kg

DRUGS (11)
  1. HUMIRA [Suspect]
     Indication: CROHN'S DISEASE
     Dosage: PEN
     Route: 058
     Dates: start: 20070406, end: 20070701
  2. HUMIRA [Suspect]
     Dosage: SYRINGE
     Route: 058
     Dates: start: 20070701
  3. AMLODIPINE BESYLATE [Concomitant]
     Indication: HYPERTENSION
     Route: 048
  4. RISEDRONATE SODIUM [Concomitant]
     Indication: OSTEOPOROSIS
     Route: 048
  5. PREDNISONE [Concomitant]
     Indication: CROHN'S DISEASE
     Route: 048
  6. OS-CAL [Concomitant]
     Indication: OSTEOPOROSIS
     Route: 048
  7. POTASSIUM CHLORIDE [Concomitant]
     Indication: VITAMIN SUPPLEMENTATION
     Route: 048
  8. VITAMIN B50 [Concomitant]
     Indication: VITAMIN SUPPLEMENTATION
     Route: 048
  9. GLUCOSAMINE [Concomitant]
     Indication: VITAMIN SUPPLEMENTATION
     Route: 048
  10. FISH OIL [Concomitant]
     Indication: VITAMIN SUPPLEMENTATION
     Route: 048
  11. LISINOPRIL [Concomitant]
     Indication: BLOOD PRESSURE

REACTIONS (7)
  - ACCIDENTAL EXPOSURE [None]
  - ASTHMA [None]
  - BLOOD PRESSURE INCREASED [None]
  - COUGH [None]
  - INJECTION SITE BRUISING [None]
  - INJECTION SITE ERYTHEMA [None]
  - INJECTION SITE PAIN [None]
